FAERS Safety Report 5403476-6 (Version None)
Quarter: 2007Q3

REPORT INFORMATION
  Report Type: 
  Country: None (occurrence: None)
  Receive Date: 20070730
  Receipt Date: 20070619
  Transmission Date: 20080115
  Serious: Yes (Hospitalization)
  Sender: FDA-Public Use
  Company Number: S07-CAN-03219-01

PATIENT
  Age: 88 Year
  Sex: Male
  Weight: 81 kg

DRUGS (6)
  1. EBIXA (MEMANTINE) [Suspect]
     Indication: DEMENTIA ALZHEIMER'S TYPE
     Dosage: 10 MG BID PO
     Route: 048
     Dates: start: 20070416
  2. RISPERDAL [Concomitant]
  3. LASIX [Concomitant]
  4. SYNTHROID [Concomitant]
  5. ACETAMINOPHEN [Concomitant]
  6. ARICEPT [Concomitant]

REACTIONS (3)
  - FALL [None]
  - FLUID RETENTION [None]
  - OEDEMA PERIPHERAL [None]
